FAERS Safety Report 7520193-7 (Version None)
Quarter: 2011Q2

REPORT INFORMATION
  Report Type: 
  Country: None (occurrence: None)
  Receive Date: 20110602
  Receipt Date: 20110523
  Transmission Date: 20111010
  Serious: Yes (Hospitalization, Other)
  Sender: FDA-Public Use
  Company Number: GB-BAUSCH-2011BL003517

PATIENT
  Age: 72 Year
  Sex: Male

DRUGS (5)
  1. DEXAMETHASONE [Suspect]
     Indication: MULTIPLE MYELOMA
     Route: 048
  2. DOXORUBICIN HCL [Concomitant]
     Indication: MULTIPLE MYELOMA
  3. CYCLOPHOSPHAMIDE [Concomitant]
     Indication: MULTIPLE MYELOMA
  4. ZOLEDRONIC ACID [Concomitant]
  5. VINCRISTINE SULFATE [Concomitant]
     Indication: MULTIPLE MYELOMA

REACTIONS (3)
  - DIABETIC HYPEROSMOLAR COMA [None]
  - DIABETES MELLITUS [None]
  - DRUG INEFFECTIVE [None]
